FAERS Safety Report 18186361 (Version 1)
Quarter: 2020Q3

REPORT INFORMATION
  Report Type: Spontaneous
  Country: US (occurrence: US)
  Receive Date: 20200822
  Receipt Date: 20200822
  Transmission Date: 20201103
  Serious: No
  Sender: FDA-Public Use
  Company Number: None

PATIENT
  Sex: Male

DRUGS (1)
  1. HUMIRA [Suspect]
     Active Substance: ADALIMUMAB
     Indication: IDIOPATHIC URTICARIA
     Route: 058
     Dates: start: 201910

REACTIONS (2)
  - Flushing [None]
  - Skin exfoliation [None]
